FAERS Safety Report 14476292 (Version 3)
Quarter: 2020Q1

REPORT INFORMATION
  Report Type: Spontaneous
  Country: US (occurrence: US)
  Receive Date: 20180201
  Receipt Date: 20200228
  Transmission Date: 20200409
  Serious: No
  Sender: FDA-Public Use
  Company Number: US-SA-2017SA263120

PATIENT
  Age: 62 Year
  Sex: Female

DRUGS (2)
  1. PRALUENT [Suspect]
     Active Substance: ALIROCUMAB
     Dosage: UNK UNK,UNK
     Route: 058
  2. PRALUENT [Suspect]
     Active Substance: ALIROCUMAB
     Indication: BLOOD CHOLESTEROL
     Dosage: 75 MG,QOW
     Route: 058

REACTIONS (8)
  - Wrong technique in device usage process [Unknown]
  - Erythema [Unknown]
  - Throat clearing [Not Recovered/Not Resolved]
  - Injury associated with device [Unknown]
  - Cough [Not Recovered/Not Resolved]
  - Peripheral swelling [Unknown]
  - Upper-airway cough syndrome [Not Recovered/Not Resolved]
  - Product dose omission [Unknown]

NARRATIVE: CASE EVENT DATE: 20171208
